FAERS Safety Report 6675589-2 (Version None)
Quarter: 2010Q2

REPORT INFORMATION
  Report Type: 
  Country: None (occurrence: None)
  Receive Date: 20100409
  Receipt Date: 20100331
  Transmission Date: 20101027
  Serious: Yes (Hospitalization)
  Sender: FDA-Public Use
  Company Number: PHHO2010US05323

PATIENT
  Sex: Female
  Weight: 59.5 kg

DRUGS (3)
  1. ZOLEDRONATE T29581+SOLINF [Suspect]
     Indication: BREAST CANCER
     Dosage: 4 MG, MONTHLY
     Route: 042
     Dates: start: 20100311, end: 20100311
  2. CALCIUM [Concomitant]
  3. VITAMIN D [Concomitant]

REACTIONS (6)
  - ARTHRALGIA [None]
  - ARTHRITIS [None]
  - CARDIAC MONITORING [None]
  - JOINT EFFUSION [None]
  - JOINT SWELLING [None]
  - SYNCOPE [None]
